FAERS Safety Report 4477974-6 (Version None)
Quarter: 2004Q4

REPORT INFORMATION
  Report Type: 
  Country: None (occurrence: None)
  Receive Date: 20041018
  Receipt Date: 20041013
  Transmission Date: 20050328
  Serious: Yes (Life-Threatening, Hospitalization, Disabling)
  Sender: FDA-Public Use
  Company Number: US-MERCK-0410USA01993

PATIENT
  Age: 47 Year
  Sex: Female

DRUGS (3)
  1. SYNTHROID [Concomitant]
     Route: 065
  2. VIOXX [Suspect]
     Indication: PAIN
     Route: 048
     Dates: start: 20020701, end: 20040401
  3. VIOXX [Suspect]
     Indication: INFLAMMATION
     Route: 048
     Dates: start: 20020701, end: 20040401

REACTIONS (2)
  - GENITAL DISORDER FEMALE [None]
  - THROMBOSIS [None]
